FAERS Safety Report 4450277-1 (Version None)
Quarter: 2004Q3

REPORT INFORMATION
  Report Type: 
  Country: None (occurrence: None)
  Receive Date: 20040915
  Receipt Date: 20040831
  Transmission Date: 20050211
  Serious: Yes (Other)
  Sender: FDA-Public Use
  Company Number: 800107

PATIENT
  Age: 49 Year
  Sex: Male
  Weight: 102.4 kg

DRUGS (1)
  1. DIANEAL [Suspect]
     Indication: PERITONEAL DIALYSIS
     Dosage: INTRAPERITONEAL
     Route: 033
     Dates: start: 20040801

REACTIONS (5)
  - ABDOMINAL PAIN [None]
  - ASCITES [None]
  - NAUSEA [None]
  - PERITONITIS [None]
  - WHITE BLOOD CELL COUNT INCREASED [None]
